FAERS Safety Report 5619400-7 (Version None)
Quarter: 2008Q1

REPORT INFORMATION
  Report Type: 
  Country: None (occurrence: None)
  Receive Date: 20080114
  Receipt Date: 20061128
  Transmission Date: 20080703
  Serious: Yes (Hospitalization)
  Sender: FDA-Public Use
  Company Number: A03200607078

PATIENT
  Age: 70 Year
  Sex: Male

DRUGS (5)
  1. PLAVIX [Suspect]
     Indication: MYOCARDIAL INFARCTION
     Dosage: 75 MG QD - ORAL
     Route: 048
     Dates: start: 19991001
  2. LANSOPRAZOLE [Concomitant]
  3. DILTIAZEM HYDROCHLORIDE [Concomitant]
  4. VALSARTAN [Concomitant]
  5. ACETYLSALICYLIC ACID SRT [Concomitant]

REACTIONS (8)
  - ARTHRALGIA [None]
  - CORONARY ARTERY OCCLUSION [None]
  - DIZZINESS [None]
  - FATIGUE [None]
  - HELICOBACTER GASTRITIS [None]
  - MYALGIA [None]
  - PAIN IN EXTREMITY [None]
  - STENT OCCLUSION [None]
